FAERS Safety Report 4396184-4 (Version None)
Quarter: 2004Q3

REPORT INFORMATION
  Report Type: 
  Country: None (occurrence: None)
  Receive Date: 20040709
  Receipt Date: 20040630
  Transmission Date: 20050211
  Serious: Yes (Death)
  Sender: FDA-Public Use
  Company Number: 2004-07-0110

PATIENT
  Age: 52 Year
  Sex: Female
  Weight: 58.0604 kg

DRUGS (7)
  1. PEG-INTRON [Suspect]
     Dosage: 96 MCG QW SUBCUTANEOUS; 48 MCG QW SUBCUTANEOUS
     Route: 058
     Dates: start: 20030905, end: 20040114
  2. PEG-INTRON [Suspect]
     Dosage: 96 MCG QW SUBCUTANEOUS; 48 MCG QW SUBCUTANEOUS
     Route: 058
     Dates: start: 20040115, end: 20040218
  3. REBETOL [Suspect]
     Dosage: 800 MG QD ORAL
     Route: 048
     Dates: start: 20030905, end: 20040218
  4. ZYPREXA [Concomitant]
  5. FOSAMAX [Concomitant]
  6. IBUPROFEN [Concomitant]
  7. IRON [Concomitant]

REACTIONS (2)
  - BONE MARROW DEPRESSION [None]
  - DEPRESSION [None]
